FAERS Safety Report 13950445 (Version 4)
Quarter: 2018Q4

REPORT INFORMATION
  Report Type: Spontaneous
  Country: US (occurrence: US)
  Receive Date: 20170908
  Receipt Date: 20181126
  Transmission Date: 20190204
  Serious: Yes (Hospitalization)
  Sender: FDA-Public Use
  Company Number: US-DSJP-DSU-2017-135911

PATIENT

DRUGS (1)
  1. BENICAR [Suspect]
     Active Substance: OLMESARTAN MEDOXOMIL
     Indication: HYPERTENSION
     Dosage: 20 MG, QD
     Route: 048
     Dates: start: 20150130, end: 20171006

REACTIONS (4)
  - Acute kidney injury [Not Recovered/Not Resolved]
  - Syncope [Unknown]
  - Weight decreased [Unknown]
  - Diverticulum [Recovering/Resolving]

NARRATIVE: CASE EVENT DATE: 20150130
